FAERS Safety Report 11363416 (Version 1)
Quarter: 2015Q3

REPORT INFORMATION
  Report Type: Spontaneous
  Country: US (occurrence: None)
  Receive Date: 20150727
  Receipt Date: 20150727
  Transmission Date: 20151125
  Serious: Yes (Other)
  Sender: FDA-Public Use
  Company Number: PHEH2015US004018

PATIENT
  Age: 5 Year
  Sex: Female

DRUGS (5)
  1. EXJADE [Suspect]
     Active Substance: DEFERASIROX
     Indication: IRON OVERLOAD
     Dosage: (36.1 MG/KG/DAY)
     Route: 048
     Dates: start: 20141204
  2. FOLIC ACID. [Concomitant]
     Active Substance: FOLIC ACID
  3. CALCIUM [Concomitant]
     Active Substance: CALCIUM
  4. EXJADE [Suspect]
     Active Substance: DEFERASIROX
     Indication: HAEMOCHROMATOSIS
     Dosage: (36.1 MG/KG/DAY)
     Route: 048
     Dates: start: 20141204
  5. VIT D (ERGOCALCIFEROL) [Concomitant]
     Active Substance: ERGOCALCIFEROL

REACTIONS (1)
  - Liver function test abnormal [None]

NARRATIVE: CASE EVENT DATE: 20150219
